FAERS Safety Report 9817369 (Version 3)
Quarter: 2014Q1

REPORT INFORMATION
  Report Type: Spontaneous
  Country: US (occurrence: US)
  Receive Date: 20140115
  Receipt Date: 20140205
  Transmission Date: 20141002
  Serious: Yes (Hospitalization)
  Sender: FDA-Public Use
  Company Number: US-BIOGENIDEC-2014BI002855

PATIENT
  Age: 66 Year
  Sex: Female

DRUGS (2)
  1. AVONEX [Suspect]
     Indication: MULTIPLE SCLEROSIS
     Route: 030
     Dates: start: 19990408
  2. AVONEX [Suspect]
     Indication: MULTIPLE SCLEROSIS
     Route: 030

REACTIONS (6)
  - Haemorrhage [Recovered/Resolved]
  - Mobility decreased [Recovered/Resolved]
  - Dysphonia [Recovered/Resolved]
  - Cardiac arrest [Recovered/Resolved]
  - Cardiac failure [Recovered/Resolved]
  - Asthenia [Not Recovered/Not Resolved]
